FAERS Safety Report 4478083-2 (Version None)
Quarter: 2004Q3

REPORT INFORMATION
  Report Type: 
  Country: None (occurrence: None)
  Receive Date: 20040923
  Receipt Date: 20040816
  Transmission Date: 20050211
  Serious: No
  Sender: FDA-Public Use
  Company Number: US_010871161

PATIENT
  Age: 69 Year
  Sex: Female
  Weight: 57 kg

DRUGS (3)
  1. FORTEO [Suspect]
     Indication: OSTEOPOROSIS
     Dosage: 20 UG 1 DAY
     Dates: start: 20040426
  2. EVISTA [Suspect]
     Indication: OSTEOPOROSIS
     Dosage: 60 MG 1 DAY
     Dates: start: 20010503
  3. FOSAMAX [Concomitant]

REACTIONS (5)
  - CYSTITIS [None]
  - HYPOAESTHESIA ORAL [None]
  - LIP DRY [None]
  - OSTEOARTHRITIS [None]
  - TOOTHACHE [None]
